FAERS Safety Report 17952120 (Version 2)
Quarter: 2020Q3

REPORT INFORMATION
  Report Type: Report from Study
  Country: CO (occurrence: CO)
  Receive Date: 20200626
  Receipt Date: 20200709
  Transmission Date: 20201103
  Serious: Yes (Death, Other)
  Sender: FDA-Public Use
  Company Number: NVSC2020CO064305

PATIENT
  Age: 44 Year
  Sex: Female

DRUGS (2)
  1. KISQALI [Suspect]
     Active Substance: RIBOCICLIB
     Indication: BREAST CANCER METASTATIC
     Dosage: 600 MG, QD (ONCE DAILY)
     Route: 048
     Dates: end: 20200523
  2. FEMARA [Suspect]
     Active Substance: LETROZOLE
     Indication: BREAST CANCER
     Dosage: 2.5 MG, QD (ONCE DAILY)
     Route: 048

REACTIONS (12)
  - General physical health deterioration [Unknown]
  - Pain [Unknown]
  - Dyspnoea [Unknown]
  - Metastases to liver [Unknown]
  - Illness [Unknown]
  - Headache [Unknown]
  - Decreased appetite [Unknown]
  - Metastases to central nervous system [Unknown]
  - Breast cancer [Fatal]
  - Metastases to lung [Unknown]
  - Hypoxia [Fatal]
  - Eating disorder [Unknown]

NARRATIVE: CASE EVENT DATE: 20200524
